FAERS Safety Report 18010960 (Version 1)
Quarter: 2020Q3

REPORT INFORMATION
  Report Type: Spontaneous
  Country: DK (occurrence: DK)
  Receive Date: 20200710
  Receipt Date: 20200710
  Transmission Date: 20201103
  Serious: Yes (Death, Congenital Anomaly)
  Sender: FDA-Public Use
  Company Number: NVSC2020DK191709

PATIENT

DRUGS (3)
  1. LAMOTRIGINE. [Concomitant]
     Active Substance: LAMOTRIGINE
     Indication: FOETAL EXPOSURE DURING PREGNANCY
     Dosage: UNK UNK, (MOTHER DOSE :350 MG, QD (STRENGTH: 50 MG+100MG+200 MG))
     Route: 064
     Dates: start: 2011
  2. DEPRAKINE [Concomitant]
     Active Substance: VALPROIC ACID
     Indication: FOETAL EXPOSURE DURING PREGNANCY
     Dosage: UNK (DOSIS: 2 TABLETTER MORGEN, 3 TABLETTER AFTEN)
     Route: 064
     Dates: start: 2011
  3. LEVETIRACETAM 1A FARMA [Suspect]
     Active Substance: LEVETIRACETAM
     Indication: FOETAL EXPOSURE DURING PREGNANCY
     Dosage: UNK  (MOTHER CASE :2000 MG, QD)
     Route: 064
     Dates: start: 2016

REACTIONS (2)
  - Foetal exposure during pregnancy [Recovered/Resolved]
  - Meningomyelocele [Fatal]

NARRATIVE: CASE EVENT DATE: 20200301
